FAERS Safety Report 9410903 (Version 1)
Quarter: 2013Q3

REPORT INFORMATION
  Report Type: Spontaneous
  Country: FR (occurrence: FR)
  Receive Date: 20130719
  Receipt Date: 20130719
  Transmission Date: 20140515
  Serious: Yes (Life-Threatening)
  Sender: FDA-Public Use
  Company Number: FR-ASTRAZENECA-2013SE53460

PATIENT
  Age: 30010 Day
  Sex: Female

DRUGS (13)
  1. INEXIUM [Suspect]
     Indication: GASTROOESOPHAGEAL REFLUX DISEASE
     Route: 042
     Dates: start: 20130619
  2. LOVENOX [Suspect]
     Indication: ATRIAL FIBRILLATION
     Route: 058
     Dates: start: 20130619, end: 20130624
  3. TAVANIC [Suspect]
     Indication: LUNG DISORDER
     Route: 042
     Dates: start: 20130619
  4. SOLUMEDROL [Suspect]
     Dosage: 40 MG / 2 ML PER DOSE, 1 DF PER DAY
     Route: 042
     Dates: start: 20130619
  5. KALEORID [Concomitant]
  6. DEBRIDAT [Concomitant]
  7. ZANIDIP [Concomitant]
  8. CORDARONE [Concomitant]
  9. CALCIDOSE VITAMINE D [Concomitant]
     Dosage: TWO SACHETS PER DAY
  10. KARDEGIC [Concomitant]
  11. TRANSIPEG [Concomitant]
     Dosage: 1 SACHET PER DAY
  12. PARAFFIN OIL [Concomitant]
  13. CHLORIDE SODIUM [Concomitant]
     Dosage: 9/1000 1 LITER EVERY OTHER DAY
     Route: 058

REACTIONS (2)
  - Heparin-induced thrombocytopenia [Unknown]
  - Venous thrombosis limb [Unknown]
